FAERS Safety Report 10530463 (Version 1)
Quarter: 2014Q4

REPORT INFORMATION
  Report Type: Spontaneous
  Country: GB (occurrence: GB)
  Receive Date: 20141021
  Receipt Date: 20141021
  Transmission Date: 20150528
  Serious: Yes (Life-Threatening, Hospitalization)
  Sender: FDA-Public Use
  Company Number: PHHY2014GB136011

PATIENT
  Age: 29 Year
  Sex: Female

DRUGS (2)
  1. COCODAMOL [Suspect]
     Active Substance: ACETAMINOPHEN\CODEINE PHOSPHATE
     Indication: PELVIC PAIN
     Route: 048
  2. PARACETAMOL [Suspect]
     Active Substance: ACETAMINOPHEN
     Indication: PELVIC PAIN
     Route: 048

REACTIONS (3)
  - Hepatotoxicity [Recovered/Resolved with Sequelae]
  - Accidental overdose [Recovered/Resolved with Sequelae]
  - Exposure during pregnancy [Recovered/Resolved]
